FAERS Safety Report 4820598-9 (Version None)
Quarter: 2005Q4

REPORT INFORMATION
  Report Type: 
  Country: None (occurrence: None)
  Receive Date: 20051104
  Receipt Date: 20051026
  Transmission Date: 20060501
  Serious: Yes (Other)
  Sender: FDA-Public Use
  Company Number: US-JNJFOC-20050505544

PATIENT
  Sex: Male
  Weight: 78.02 kg

DRUGS (7)
  1. REMICADE [Suspect]
     Route: 042
  2. REMICADE [Suspect]
     Route: 042
  3. REMICADE [Suspect]
     Route: 042
  4. FOLIC ACID [Concomitant]
  5. CLARINEX [Concomitant]
  6. NASONEX [Concomitant]
  7. FLAX SEED OIL [Concomitant]

REACTIONS (1)
  - COCCIDIOIDOMYCOSIS [None]
